FAERS Safety Report 4474753-0 (Version None)
Quarter: 2004Q4

REPORT INFORMATION
  Report Type: 
  Country: None (occurrence: None)
  Receive Date: 20041014
  Receipt Date: 20041006
  Transmission Date: 20050328
  Serious: Yes (Other)
  Sender: FDA-Public Use
  Company Number: PHBS2004BE13423

PATIENT
  Age: 32 Year
  Sex: Male

DRUGS (2)
  1. ELIDEL [Suspect]
     Indication: DERMATITIS ATOPIC
     Dosage: UNK, BID
     Dates: start: 20040101, end: 20040820
  2. ELIDEL [Suspect]
     Dosage: UNK, BID
     Dates: start: 20040915

REACTIONS (4)
  - BLISTER [None]
  - BURNING SENSATION [None]
  - PHOTOSENSITIVITY ALLERGIC REACTION [None]
  - PRURITUS [None]
